FAERS Safety Report 17417892 (Version 5)
Quarter: 2023Q2

REPORT INFORMATION
  Report Type: Report from Study
  Country: CA (occurrence: CA)
  Receive Date: 20200213
  Receipt Date: 20230510
  Transmission Date: 20230722
  Serious: Yes (Other)
  Sender: FDA-Public Use
  Company Number: None

PATIENT
  Sex: Female

DRUGS (1)
  1. HUMIRA [Suspect]
     Active Substance: ADALIMUMAB
     Indication: Crohn^s disease
     Route: 058
     Dates: start: 20140828

REACTIONS (8)
  - Pouchitis [Not Recovered/Not Resolved]
  - Obstruction [Recovering/Resolving]
  - Stenosis [Not Recovered/Not Resolved]
  - General symptom [Not Recovered/Not Resolved]
  - Nasopharyngitis [Unknown]
  - Abdominal discomfort [Recovered/Resolved]
  - Haemorrhoids [Unknown]
  - Muscle spasms [Unknown]

NARRATIVE: CASE EVENT DATE: 20180101
